FAERS Safety Report 26058808 (Version 1)
Quarter: 2025Q4

REPORT INFORMATION
  Report Type: Spontaneous
  Country: GB (occurrence: GB)
  Receive Date: 20251118
  Receipt Date: 20251118
  Transmission Date: 20260118
  Serious: Yes (Other)
  Sender: AUROBINDO
  Company Number: GB-MHRA-TPP10089418C28740095YC1762361371581

PATIENT
  Age: 26 Year
  Sex: Female
  Weight: 65 kg

DRUGS (9)
  1. CEPHALEXIN [Suspect]
     Active Substance: CEPHALEXIN
     Indication: Product used for unknown indication
     Dosage: TAKE ONE 3 TIMES PER DAY
     Route: 065
     Dates: start: 20251104
  2. CLARITHROMYCIN [Concomitant]
     Active Substance: CLARITHROMYCIN
     Indication: Ill-defined disorder
     Dosage: 1 DOSAGE FORM, TWO TIMES A DAY
     Route: 065
     Dates: start: 20250818, end: 20250825
  3. LYMECYCLINE [Concomitant]
     Active Substance: LYMECYCLINE
     Indication: Ill-defined disorder
     Dosage: 1 DOSAGE FORM, DAILY
     Route: 065
     Dates: start: 20251001, end: 20251029
  4. CYCLIZINE [Concomitant]
     Active Substance: CYCLIZINE
     Indication: Ill-defined disorder
     Dosage: AKE 1 THREE TIMES DAILY FOR NAUSEA AND VOMITING
     Dates: start: 20251029
  5. CYCLIZINE [Concomitant]
     Active Substance: CYCLIZINE
     Indication: Nausea
  6. CYCLIZINE [Concomitant]
     Active Substance: CYCLIZINE
     Indication: Vomiting
  7. CLOTRIMAZOLE [Concomitant]
     Active Substance: CLOTRIMAZOLE
     Indication: Ill-defined disorder
     Dosage: UNK UNK, AS DIRECTED
     Route: 065
  8. CYANOCOBALAMIN [Concomitant]
     Active Substance: CYANOCOBALAMIN
     Indication: Ill-defined disorder
     Dosage: 1 TABLET A DAY
     Route: 065
     Dates: start: 20220926, end: 20250901
  9. BETESIL [Concomitant]
     Indication: Ill-defined disorder
     Dosage: UNK UNK, ONCE A DAY
     Route: 065
     Dates: start: 20221216, end: 20250901

REACTIONS (3)
  - Hyperemesis gravidarum [Recovered/Resolved]
  - Diarrhoea [Recovered/Resolved]
  - Maternal exposure during pregnancy [Unknown]
